FAERS Safety Report 8839659 (Version 1)
Quarter: 2012Q4

REPORT INFORMATION
  Report Type: Spontaneous
  Country: AT (occurrence: None)
  Receive Date: 20121011
  Receipt Date: 20121011
  Transmission Date: 20130627
  Serious: Yes (Hospitalization)
  Sender: FDA-Public Use
  Company Number: 1438706

PATIENT
  Age: 63 Year
  Sex: Female
  Weight: 80 kg

DRUGS (4)
  1. PACLITAXEL [Suspect]
     Indication: BREAST CANCER FEMALE
     Route: 042
     Dates: start: 20120914, end: 20120914
  2. FENISTIL [Concomitant]
  3. SOLU DACORTIN [Concomitant]
  4. ULCOSAN [Concomitant]

REACTIONS (7)
  - Renal colic [None]
  - Swelling face [None]
  - Sensory disturbance [None]
  - Hypotension [None]
  - Flushing [None]
  - Tachycardia [None]
  - Abdominal pain upper [None]
